FAERS Safety Report 17484622 (Version 1)
Quarter: 2020Q1

REPORT INFORMATION
  Report Type: Report from Study
  Country: GB (occurrence: GB)
  Receive Date: 20200302
  Receipt Date: 20200302
  Transmission Date: 20200409
  Serious: Yes (Other)
  Sender: FDA-Public Use
  Company Number: GB-JNJFOC-20200236098

PATIENT

DRUGS (3)
  1. DUROGESIC [Suspect]
     Active Substance: FENTANYL
     Indication: PRODUCT USED FOR UNKNOWN INDICATION
     Route: 065
  2. HALDOL [Suspect]
     Active Substance: HALOPERIDOL
     Indication: PRODUCT USED FOR UNKNOWN INDICATION
     Route: 065
  3. IBUPROFEN. [Suspect]
     Active Substance: IBUPROFEN
     Indication: PRODUCT USED FOR UNKNOWN INDICATION
     Route: 065

REACTIONS (11)
  - Stevens-Johnson syndrome [Unknown]
  - Alopecia [Unknown]
  - Acne [Unknown]
  - Flushing [Unknown]
  - Toxic epidermal necrolysis [Unknown]
  - Pruritus [Unknown]
  - Angioedema [Unknown]
  - Dermatitis [Unknown]
  - Photosensitivity reaction [Unknown]
  - Jaundice [Unknown]
  - Rash [Unknown]
